FAERS Safety Report 7735068-8 (Version None)
Quarter: 2011Q3

REPORT INFORMATION
  Report Type: 
  Country: None (occurrence: None)
  Receive Date: 20110907
  Receipt Date: 20110831
  Transmission Date: 20111222
  Serious: Yes (Death, Hospitalization, Other)
  Sender: FDA-Public Use
  Company Number: US-BAYER-200940466NA

PATIENT
  Age: 72 Year
  Sex: Male
  Weight: 93 kg

DRUGS (47)
  1. ACTOS [Concomitant]
     Dosage: UNK
     Dates: start: 20061003, end: 20070114
  2. KLOR-CON [Concomitant]
     Dosage: UNK
     Dates: start: 20061204, end: 20070114
  3. RED BLOOD CELLS [Concomitant]
     Dosage: 2 U, UNK
     Dates: start: 20070115
  4. BUMEX [Concomitant]
     Dosage: INTERMITTENT FOLLOWED BY DRIP
     Route: 042
     Dates: start: 20070116, end: 20070127
  5. METOPROLOL [Concomitant]
     Dosage: 100 MG, QD
     Route: 048
  6. BUMEX [Concomitant]
     Dosage: 2 MG, BID
  7. TRASYLOL [Suspect]
     Indication: TRICUSPID VALVE REPAIR
     Dosage: 200 ML, LOADING DOSE
     Route: 042
     Dates: start: 20070115, end: 20070115
  8. ISOSORBIDE [ISOSORBIDE] [Concomitant]
     Dosage: 20 MG, TID
     Route: 048
     Dates: start: 20061211, end: 20070114
  9. VERSED [Concomitant]
     Dosage: 8 MG, CONTINUED IN INTENSIVE CARE
     Route: 042
     Dates: start: 20070115
  10. FRESH FROZEN PLASMA [Concomitant]
     Dosage: 2 U, UNK
     Dates: start: 20070115
  11. DOPAMINE HCL [Concomitant]
     Dosage: UNK
     Route: 041
     Dates: start: 20070201, end: 20070206
  12. CONTRAST MEDIA [Concomitant]
     Dosage: UNK
     Dates: start: 20070126
  13. MIDAZOLAM HCL [Concomitant]
     Dosage: 8 MG, UNK
     Route: 042
     Dates: start: 20070115, end: 20070115
  14. FLOMAX [Concomitant]
     Dosage: UNK
     Dates: start: 20060509, end: 20070127
  15. TRAZODONE HCL [Concomitant]
     Dosage: UNK
     Dates: start: 20061120, end: 20070114
  16. FENTANYL-100 [Concomitant]
     Dosage: 1000 MCG, CONTINUED IN INTENSIVE CARE
     Route: 042
     Dates: start: 20070115
  17. LOVENOX [Concomitant]
     Dosage: 80 MG, QD
     Route: 058
  18. ZOCOR [Concomitant]
     Dosage: 10 MG, QD
     Route: 048
  19. INSULIN [Concomitant]
     Dosage: VARIED DOSES
     Route: 058
     Dates: start: 19950101
  20. ARANESP [Concomitant]
     Dosage: 40 MCG, WEEKLY
     Route: 058
  21. PHENYLEPHRINE [PHENYLEPHRINE] [Concomitant]
     Dosage: 50 ?G, UNK
     Route: 042
     Dates: start: 20070115, end: 20070115
  22. MILRINONE [Concomitant]
     Dosage: 0.25 MCG/KG/MIN, TITRATED OFF IN INTENSIVE CARE
     Route: 042
     Dates: start: 20070115
  23. PANCURONIUM [Concomitant]
     Dosage: 1MG/1M - 10ML
     Route: 042
     Dates: start: 20070115, end: 20070115
  24. CONTRAST MEDIA [Concomitant]
     Indication: CATHETERISATION CARDIAC
     Dosage: UNK
     Dates: start: 20061229
  25. VANCOMYCIN [Concomitant]
     Dosage: 1 G, UNK
     Route: 042
     Dates: start: 20070115, end: 20070115
  26. PROTAMINE [Concomitant]
     Dosage: 350 MG, UNK
     Route: 042
     Dates: start: 20070115, end: 20070115
  27. ACTOS [Concomitant]
     Dosage: 15 MG, QD
     Route: 048
  28. HYDRALAZINE HCL [Concomitant]
     Dosage: 25 MG, TID
     Route: 048
     Dates: start: 20061211, end: 20070114
  29. TOPROL-XL [Concomitant]
     Dosage: UNK
     Dates: start: 20060602, end: 20070114
  30. ENALAPRIL MALEATE [Concomitant]
     Dosage: 5 MG, QD
     Route: 048
  31. HEPARIN [Concomitant]
     Dosage: 30000 U, UNK
     Route: 042
     Dates: start: 20070115, end: 20070115
  32. TRASYLOL [Suspect]
     Indication: CARDIAC ANEURYSM REPAIR
     Dosage: 50 ML/HOUR
     Route: 041
     Dates: start: 20070115, end: 20070115
  33. PROPOFOL [Concomitant]
     Dosage: 40 MCG/KG/MIN, TITRATED OFF IN INTENSIVE CARE
     Route: 042
     Dates: start: 20070115
  34. PROTONIX [Concomitant]
  35. ALLOPURINOL [Concomitant]
     Dosage: 100 MG, QD
     Route: 048
     Dates: start: 20060425, end: 20070114
  36. SIMVASTATIN [Concomitant]
     Dosage: UNK
     Dates: start: 20060811, end: 20070114
  37. WARFARIN [Concomitant]
     Dosage: UNK
     Dates: start: 20060903, end: 20070114
  38. NOREPINEPHRINE BITARTRATE [Concomitant]
     Dosage: 0.08 MCG/KG/MIN, TITRATED OFF IN INTENSIVE CARE
     Route: 042
     Dates: start: 20070115
  39. PLATELETS [Concomitant]
     Dosage: TWO 5-PACKS
     Dates: start: 20070115
  40. NITRIC OXIDE [Concomitant]
     Dosage: UNK
     Dates: start: 20070115
  41. ZAROXOLYN [Concomitant]
  42. TRASYLOL [Suspect]
     Indication: CORONARY ARTERY BYPASS
     Dosage: 1 ML, TEST DOSE
     Route: 042
     Dates: start: 20070115, end: 20070115
  43. BUMETANIDE [Concomitant]
     Dosage: UNK
     Dates: start: 20060905, end: 20070114
  44. INSULIN [Concomitant]
     Dosage: 4 U, Q1HR
     Route: 042
     Dates: start: 20070115
  45. LIPITOR [Concomitant]
     Dosage: 80 MG, QD
     Route: 048
  46. ACETYLSALICYLIC ACID SRT [Concomitant]
     Dosage: 81 MG, QD
     Route: 048
  47. VISIPAQUE [Concomitant]
     Dosage: 18 ML, UNK
     Dates: start: 20061229

REACTIONS (12)
  - RENAL IMPAIRMENT [None]
  - ANXIETY [None]
  - INJURY [None]
  - RENAL FAILURE [None]
  - PAIN [None]
  - DEATH [None]
  - STRESS [None]
  - UNEVALUABLE EVENT [None]
  - EMOTIONAL DISTRESS [None]
  - ANHEDONIA [None]
  - RENAL INJURY [None]
  - FEAR [None]
